FAERS Safety Report 7672198-3 (Version None)
Quarter: 2011Q3

REPORT INFORMATION
  Report Type: 
  Country: None (occurrence: None)
  Receive Date: 20110809
  Receipt Date: 20110804
  Transmission Date: 20111222
  Serious: Yes (Death)
  Sender: FDA-Public Use
  Company Number: PHHY2011BR71085

PATIENT
  Sex: Female

DRUGS (2)
  1. EXFORGE HCT [Suspect]
     Dosage: 160 MG VALS/12.5 MG HYDR/5 MG AMLO
  2. DIOVAN HCT [Suspect]
     Dosage: 160 MG VALS AND 12.5 MG HYDR

REACTIONS (5)
  - NEUROPATHY PERIPHERAL [None]
  - CARDIOGENIC SHOCK [None]
  - HEART RATE DECREASED [None]
  - MITRAL VALVE DISEASE [None]
  - RENAL FAILURE [None]
